FAERS Safety Report 19566252 (Version 12)
Quarter: 2021Q3

REPORT INFORMATION
  Report Type: Report from Study
  Country: UA (occurrence: UA)
  Receive Date: 20210714
  Receipt Date: 20210928
  Transmission Date: 20211014
  Serious: Yes (Hospitalization)
  Sender: FDA-Public Use
  Company Number: UA-ROCHE-2866541

PATIENT
  Age: 62 Year
  Sex: Male
  Weight: 68 kg

DRUGS (39)
  1. AMINOCAPRONIC ACID [Concomitant]
     Active Substance: AMINOCAPROIC ACID
     Route: 048
     Dates: start: 20210821, end: 20210830
  2. TRANEXAMIC ACID. [Concomitant]
     Active Substance: TRANEXAMIC ACID
     Route: 042
     Dates: start: 20210825, end: 20210825
  3. CARDIOMAGNYL [Concomitant]
     Active Substance: ASPIRIN\MAGNESIUM HYDROXIDE
     Indication: CEREBRAL ARTERIOSCLEROSIS
     Route: 048
     Dates: start: 20170306, end: 20210818
  4. BERLITHION [Concomitant]
     Route: 042
     Dates: start: 20210630, end: 20210630
  5. VICASOLUM [Concomitant]
     Indication: HAEMOPTYSIS
     Route: 030
     Dates: start: 20210821, end: 20210830
  6. HEMOTRAN [Concomitant]
     Indication: HAEMOPTYSIS
     Route: 042
     Dates: start: 20210826, end: 20210830
  7. PLACEBO [Suspect]
     Active Substance: UNSPECIFIED INGREDIENT
     Indication: SQUAMOUS CELL CARCINOMA OF LUNG
     Dosage: DATE OF MOST RECENT DOSE OF BINDED TIRAGOLUMAB PRIOR TO SAE/AE ONSET: 30/JUN/2021
     Route: 042
     Dates: start: 20210609
  8. STEROFUNDIN [Concomitant]
     Active Substance: CALCIUM CHLORIDE\MAGNESIUM CHLORIDE\POTASSIUM CHLORIDE\SODIUM ACETATE\SODIUM CHLORIDE
     Route: 042
     Dates: start: 20210609, end: 20210609
  9. REFORDES [Concomitant]
     Route: 042
     Dates: start: 20210825, end: 20210825
  10. XARELTO [Concomitant]
     Active Substance: RIVAROXABAN
     Indication: THROMBOCYTOSIS
     Route: 048
     Dates: start: 20210604, end: 20210818
  11. STEROFUNDIN [Concomitant]
     Active Substance: CALCIUM CHLORIDE\MAGNESIUM CHLORIDE\POTASSIUM CHLORIDE\SODIUM ACETATE\SODIUM CHLORIDE
     Route: 042
     Dates: start: 20210630, end: 20210630
  12. CALCIUM CHLORIDE. [Concomitant]
     Active Substance: CALCIUM CHLORIDE
     Route: 042
     Dates: start: 20210825, end: 20210825
  13. TORVACARD [Concomitant]
     Active Substance: ATORVASTATIN CALCIUM
     Indication: CEREBRAL ARTERIOSCLEROSIS
     Route: 048
     Dates: start: 20170306
  14. MUCITUS [Concomitant]
     Route: 048
     Dates: start: 20210604
  15. PANANGIN [Concomitant]
     Active Substance: MAGNESIUM ASPARTATE\POTASSIUM ASPARTATE
     Route: 048
     Dates: start: 20210727
  16. AMINOCAPRONIC ACID [Concomitant]
     Active Substance: AMINOCAPROIC ACID
     Route: 042
     Dates: start: 20210819, end: 20210820
  17. TRANEXAMIC ACID. [Concomitant]
     Active Substance: TRANEXAMIC ACID
     Route: 048
     Dates: start: 20210821, end: 20210830
  18. ATEZOLIZUMAB. [Suspect]
     Active Substance: ATEZOLIZUMAB
     Indication: SQUAMOUS CELL CARCINOMA OF LUNG
     Dosage: DATE OF MOST RECENT DOSE OF ATEZOLIZUMAB AT 1200 MG PRIOR TO SAE/AE ONSET: 30/JUN/2021
     Route: 041
     Dates: start: 20210609
  19. MILDRONAT [Concomitant]
     Route: 042
     Dates: start: 20210630, end: 20210630
  20. BERLITHION [Concomitant]
     Route: 042
     Dates: start: 20210609, end: 20210609
  21. OMEPRAZOLUM [Concomitant]
     Route: 042
     Dates: start: 20210716, end: 20210724
  22. PREDUCTAL OD [Concomitant]
     Indication: ESSENTIAL HYPERTENSION
     Route: 048
     Dates: start: 20210604
  23. DICYNONE [Concomitant]
     Active Substance: ETHAMSYLATE
     Route: 030
     Dates: start: 20210819, end: 20210820
  24. VALODIP [Concomitant]
     Indication: ESSENTIAL HYPERTENSION
     Route: 048
     Dates: start: 20170306
  25. HEPTRAL [Concomitant]
     Active Substance: ADEMETIONINE
     Route: 042
     Dates: start: 20210826, end: 20210905
  26. CALCIUM CHLORIDE. [Concomitant]
     Active Substance: CALCIUM CHLORIDE
     Indication: HAEMOPTYSIS
     Route: 042
     Dates: start: 20210819, end: 20210820
  27. BETARGIN [Concomitant]
     Route: 048
     Dates: start: 20210604
  28. NOLPAZA [Concomitant]
     Active Substance: PANTOPRAZOLE SODIUM
     Route: 048
     Dates: start: 20210727
  29. TRANEXAMIC ACID. [Concomitant]
     Active Substance: TRANEXAMIC ACID
     Indication: HAEMOPTYSIS
     Route: 042
     Dates: start: 20210819, end: 20210820
  30. SORBIFER [FERROUS SULFATE] [Concomitant]
     Active Substance: FERROUS SULFATE
     Indication: ANAEMIA
     Route: 048
     Dates: start: 20210521
  31. AMINOCAPRONIC ACID [Concomitant]
     Active Substance: AMINOCAPROIC ACID
     Indication: HAEMOPTYSIS
     Route: 042
     Dates: start: 20210825, end: 20210825
  32. DICYNONE [Concomitant]
     Active Substance: ETHAMSYLATE
     Indication: HAEMOPTYSIS
     Route: 030
     Dates: start: 20210825, end: 20210825
  33. POTASSIUM CHLORIDE. [Concomitant]
     Active Substance: POTASSIUM CHLORIDE
     Indication: HAEMOPTYSIS
     Route: 042
     Dates: start: 20210825, end: 20210825
  34. POTASSIUM CHLORIDE. [Concomitant]
     Active Substance: POTASSIUM CHLORIDE
     Route: 042
     Dates: start: 20210819, end: 20210819
  35. REFORDES [Concomitant]
     Indication: HAEMOPTYSIS
     Route: 042
     Dates: start: 20210819, end: 20210820
  36. SUPRASTIN [Concomitant]
     Active Substance: CHLOROPYRAMINE HYDROCHLORIDE
     Indication: HAEMOPTYSIS
     Route: 030
     Dates: start: 20210819, end: 20210819
  37. NEBILET [Concomitant]
     Active Substance: NEBIVOLOL
     Indication: ESSENTIAL HYPERTENSION
     Route: 048
     Dates: start: 20170306
  38. MILDRONAT [Concomitant]
     Route: 042
     Dates: start: 20210609, end: 20210609
  39. BERLITHION [Concomitant]
     Route: 042
     Dates: start: 20210826, end: 20210830

REACTIONS (3)
  - Lung abscess [Recovered/Resolved]
  - Pneumonitis [Not Recovered/Not Resolved]
  - Paracancerous pneumonia [Recovered/Resolved with Sequelae]

NARRATIVE: CASE EVENT DATE: 20210707
